FAERS Safety Report 18496213 (Version 2)
Quarter: 2020Q4

REPORT INFORMATION
  Report Type: Spontaneous
  Country: US (occurrence: US)
  Receive Date: 20201112
  Receipt Date: 20201230
  Transmission Date: 20210114
  Serious: Yes (Other)
  Sender: FDA-Public Use
  Company Number: US-IMPRIMIS NJOF-2095864

PATIENT
  Sex: Male

DRUGS (1)
  1. PREDNISOLONE ACETATE-MOXIFLOXACIN-NEPAFENAC STERILE OPHTHALMIC SUSPENS [Suspect]
     Active Substance: MOXIFLOXACIN\NEPAFENAC\PREDNISOLONE ACETATE
     Indication: POSTERIOR CAPSULE OPACIFICATION
     Route: 047
     Dates: start: 20201003, end: 20201103

REACTIONS (1)
  - Visual impairment [Recovering/Resolving]
